FAERS Safety Report 6354845-1 (Version None)
Quarter: 2009Q3

REPORT INFORMATION
  Report Type: 
  Country: None (occurrence: None)
  Receive Date: 20090914
  Receipt Date: 20090903
  Transmission Date: 20100115
  Serious: Yes (Hospitalization)
  Sender: FDA-Public Use
  Company Number: US-ASTRAZENECA-2009SE11324

PATIENT
  Age: 26649 Day
  Sex: Female
  Weight: 123.8 kg

DRUGS (7)
  1. FASLODEX [Suspect]
     Dosage: 250 MG/5ML
     Route: 030
     Dates: start: 20080301
  2. PHOSLO [Concomitant]
     Indication: RENAL DISORDER
     Route: 065
  3. VICODIN [Concomitant]
     Indication: PAIN
     Route: 065
  4. SYNTHROID [Concomitant]
     Indication: HYPOTHYROIDISM
     Route: 065
  5. MAGNESIUM [Concomitant]
     Route: 065
  6. VITAMIN B-12 [Concomitant]
     Route: 065
  7. CALCIUM [Concomitant]
     Route: 065

REACTIONS (2)
  - NAIL DISORDER [None]
  - RENAL FAILURE [None]
